FAERS Safety Report 9172135 (Version 2)
Quarter: 2013Q2

REPORT INFORMATION
  Report Type: Spontaneous
  Country: JP (occurrence: JP)
  Receive Date: 20130319
  Receipt Date: 20130422
  Transmission Date: 20140414
  Serious: Yes (Hospitalization)
  Sender: FDA-Public Use
  Company Number: JP-UCBSA-078713

PATIENT
  Age: 37 Year
  Sex: Male

DRUGS (14)
  1. E KEPPRA [Suspect]
     Indication: EPILEPSY
     Dosage: DAILY DOSE: 3000 MG
     Route: 048
     Dates: start: 20121024, end: 20130122
  2. E KEPPRA [Suspect]
     Indication: EPILEPSY
     Dosage: DAILY DOSE: 2500 MG
     Route: 048
     Dates: start: 20120926, end: 20121023
  3. E KEPPRA [Suspect]
     Indication: EPILEPSY
     Dosage: DAILY DOSE: 2000 MG
     Route: 048
     Dates: start: 20120831, end: 20120925
  4. E KEPPRA [Suspect]
     Indication: EPILEPSY
     Dosage: DAILY DOSE: 1500 MG
     Route: 048
     Dates: start: 20120704, end: 20120830
  5. E KEPPRA [Suspect]
     Indication: EPILEPSY
     Dosage: DAILY DOSE: 1000 MG
     Route: 048
     Dates: start: 20120510, end: 20120703
  6. E KEPPRA [Suspect]
     Indication: EPILEPSY
     Route: 048
     Dates: start: 20120417, end: 20120509
  7. EXCEGRAN [Concomitant]
     Indication: EPILEPSY
     Dosage: DAILY DOSE: 200 MG
     Route: 048
  8. ALEVIATIN [Concomitant]
     Dosage: DAILY DOSE: 230 MG
     Route: 048
  9. CARBAMAZEPINE [Concomitant]
     Indication: EPILEPSY
     Dosage: DAILY DOSE:800 MG
     Route: 048
  10. LANDSEN [Concomitant]
     Indication: EPILEPSY
     Dosage: DAILY DOSE:6.5 MG
     Route: 048
  11. SELENICA-R [Concomitant]
     Indication: EPILEPSY
     Dosage: DAILY DOSE: 1600 MG
     Route: 048
  12. ONEALFA [Concomitant]
     Indication: OSTEOPOROSIS
     Dosage: DAILY DOSE: 1 MICRO GRAM
     Route: 048
  13. LEFTOSE [Concomitant]
     Indication: SINUSITIS
     Dosage: DAILY DOSE: 150 MG
     Route: 048
  14. PURSENNID [Concomitant]
     Indication: CONSTIPATION
     Dosage: DAILY DOSE: 24 MG
     Route: 048

REACTIONS (3)
  - White blood cell count decreased [Recovered/Resolved]
  - Decreased activity [Recovered/Resolved]
  - Hypothermia [Recovering/Resolving]
